FAERS Safety Report 7458561-4 (Version None)
Quarter: 2011Q2

REPORT INFORMATION
  Report Type: 
  Country: None (occurrence: None)
  Receive Date: 20110504
  Receipt Date: 20110429
  Transmission Date: 20111010
  Serious: Yes (Hospitalization)
  Sender: FDA-Public Use
  Company Number: US-B.I. PHARMACEUTICALS,INC./RIDGEFIELD-2011-BP-12237BP

PATIENT
  Sex: Male

DRUGS (5)
  1. COMBIVENT [Suspect]
     Indication: DYSPNOEA
     Dosage: 4 PUF
     Route: 055
     Dates: start: 20110411, end: 20110411
  2. ADVAIR DISKUS 100/50 [Concomitant]
     Indication: SEASONAL ALLERGY
     Route: 055
     Dates: start: 20110411
  3. COMBIVENT [Suspect]
     Indication: SEASONAL ALLERGY
  4. MUCINEX [Concomitant]
     Indication: SEASONAL ALLERGY
     Route: 048
     Dates: start: 20110411
  5. FLONASE [Concomitant]
     Indication: SEASONAL ALLERGY
     Route: 045
     Dates: start: 20110411

REACTIONS (5)
  - PAIN IN EXTREMITY [None]
  - ANXIETY [None]
  - CHEST DISCOMFORT [None]
  - DRY MOUTH [None]
  - CONFUSIONAL STATE [None]
